FAERS Safety Report 6371023-0 (Version None)
Quarter: 2009Q3

REPORT INFORMATION
  Report Type: 
  Country: None (occurrence: None)
  Receive Date: 20090923
  Receipt Date: 20090915
  Transmission Date: 20100115
  Serious: No
  Sender: FDA-Public Use
  Company Number: US-JNJFOC-20090709124

PATIENT
  Sex: Female
  Weight: 52.62 kg

DRUGS (7)
  1. REMICADE [Suspect]
     Indication: CROHN'S DISEASE
     Dosage: RECEIVED 2 INFUSIONS ON UNSPECIFIED DATES
     Route: 042
  2. ASACOL [Concomitant]
  3. PREDNISONE [Concomitant]
  4. AXID [Concomitant]
  5. NEXIUM [Concomitant]
     Indication: GASTROOESOPHAGEAL REFLUX DISEASE
     Dosage: AS NEEDED (SEVERE GERD 1-2 TIMES/YEAR)
  6. M.V.I. [Concomitant]
  7. ALLEGRA [Concomitant]

REACTIONS (4)
  - ACNE [None]
  - ANGIOLIPOMA [None]
  - NAIL DISORDER [None]
  - SKIN NODULE [None]
